FAERS Safety Report 16506973 (Version 1)
Quarter: 2019Q3

REPORT INFORMATION
  Report Type: Report from Study
  Country: US (occurrence: US)
  Receive Date: 20190701
  Receipt Date: 20190701
  Transmission Date: 20191004
  Serious: Yes (Death)
  Sender: FDA-Public Use
  Company Number: US-PFIZER INC-2019277224

PATIENT

DRUGS (5)
  1. GEMCITABINE HYDROCHLORIDE. [Suspect]
     Active Substance: GEMCITABINE HYDROCHLORIDE
     Indication: NON-SMALL CELL LUNG CANCER
     Dosage: 1000 MG/M2, CYCLIC (OVER 30 MIN ON DAYS 1, 8 AND 15 OF EACH 28 DAY CYCLE)
     Route: 042
  2. PACLITAXEL. [Suspect]
     Active Substance: PACLITAXEL
     Indication: NON-SMALL CELL LUNG CANCER
     Dosage: 110 MG/M2, CYCLIC (OVER 1 H ON DAYS 1, 8 AND 15 OF EACH 28 DAY CYCLE)
     Route: 042
  3. RANITIDINE. [Concomitant]
     Active Substance: RANITIDINE
     Dosage: 50 MG, (THIRTY MINUTES BEFORE PACLITAXEL INFUSION)
  4. DEXAMETHASONE. [Concomitant]
     Active Substance: DEXAMETHASONE
     Dosage: 20 MG, (THIRTY MINUTES BEFORE PACLITAXEL INFUSION)
  5. DIPHENHYDRAMINE. [Concomitant]
     Active Substance: DIPHENHYDRAMINE
     Dosage: 50 MG, (THIRTY MINUTES BEFORE PACLITAXEL INFUSION)

REACTIONS (1)
  - Pneumonitis [Fatal]
